FAERS Safety Report 15799077 (Version 2)
Quarter: 2019Q1

REPORT INFORMATION
  Report Type: Spontaneous
  Country: US (occurrence: US)
  Receive Date: 20190108
  Receipt Date: 20190228
  Transmission Date: 20190417
  Serious: Yes (Hospitalization)
  Sender: FDA-Public Use
  Company Number: US-JNJFOC-20190103815

PATIENT
  Age: 64 Year
  Sex: Male
  Weight: 61.6 kg

DRUGS (5)
  1. REMICADE [Suspect]
     Active Substance: INFLIXIMAB
     Indication: COLITIS ULCERATIVE
     Dosage: STRENGTH = 100 MG 21-JUN-2018, 19-JUL-2018, 09-NOV-2018 AND 04-JAN-2019.
     Route: 042
     Dates: start: 20180607
  2. VITAMIN B [Concomitant]
     Active Substance: VITAMIN B
     Indication: ANAEMIA
     Route: 065
  3. CLOPIDOGREL [Concomitant]
     Active Substance: CLOPIDOGREL BISULFATE
     Route: 065
     Dates: start: 20190104
  4. METOPROLOL. [Concomitant]
     Active Substance: METOPROLOL
     Dosage: FIRST WEEK
     Route: 065
     Dates: start: 201812
  5. ATORVASTATIN [Concomitant]
     Active Substance: ATORVASTATIN
     Route: 065
     Dates: start: 20190104

REACTIONS (8)
  - Injection site pruritus [Recovering/Resolving]
  - Drug specific antibody present [Recovering/Resolving]
  - Contraindication to vaccination [Unknown]
  - Vaccination complication [Unknown]
  - Muscular weakness [Unknown]
  - Infusion related reaction [Recovering/Resolving]
  - Coronary artery occlusion [Unknown]
  - Nasopharyngitis [Recovering/Resolving]

NARRATIVE: CASE EVENT DATE: 2018
